FAERS Safety Report 13647017 (Version 2)
Quarter: 2018Q1

REPORT INFORMATION
  Report Type: Report from Study
  Country: PL (occurrence: PL)
  Receive Date: 20170613
  Receipt Date: 20180101
  Transmission Date: 20180508
  Serious: Yes (Other)
  Sender: FDA-Public Use
  Company Number: PL-ROCHE-1945348

PATIENT

DRUGS (2)
  1. RIBAVIRIN. [Suspect]
     Active Substance: RIBAVIRIN
     Indication: HEPATITIS C
     Route: 065
  2. LEDIPASVIR/SOFOSBUVIR [Suspect]
     Active Substance: LEDIPASVIR\SOFOSBUVIR
     Indication: HEPATITIS C
     Dosage: SINGLE DAILY DOSE: 90/400 MG
     Route: 065

REACTIONS (13)
  - Headache [Unknown]
  - Asthenia [Unknown]
  - Cough [Unknown]
  - Oedema [Unknown]
  - Hyperbilirubinaemia [Unknown]
  - Arthralgia [Unknown]
  - Myalgia [Unknown]
  - Bleeding varicose vein [Unknown]
  - Fatigue [Unknown]
  - Sepsis [Unknown]
  - Ascites [Unknown]
  - Diarrhoea [Unknown]
  - Anaemia [Unknown]
